FAERS Safety Report 6742094-4 (Version None)
Quarter: 2010Q2

REPORT INFORMATION
  Report Type: 
  Country: None (occurrence: None)
  Receive Date: 20100526
  Receipt Date: 20100514
  Transmission Date: 20101027
  Serious: Yes (Other)
  Sender: FDA-Public Use
  Company Number: PHHY2010CA31177

PATIENT
  Sex: Female

DRUGS (3)
  1. DIOVAN [Suspect]
     Dosage: 160 MG, UNK
  2. NORVASC [Concomitant]
  3. LIPITOR [Concomitant]

REACTIONS (3)
  - COUGH [None]
  - HYPERHIDROSIS [None]
  - PNEUMONIA [None]
